FAERS Safety Report 7708151-0 (Version None)
Quarter: 2011Q3

REPORT INFORMATION
  Report Type: 
  Country: None (occurrence: None)
  Receive Date: 20110825
  Receipt Date: 20110816
  Transmission Date: 20111222
  Serious: No
  Sender: FDA-Public Use
  Company Number: US-BIOGENIDEC-2011BI014457

PATIENT
  Sex: Female

DRUGS (3)
  1. TYSABRI [Suspect]
     Indication: MULTIPLE SCLEROSIS
     Route: 042
     Dates: start: 20100414
  2. MULTI-VITAMIN [Concomitant]
     Indication: MULTIPLE SCLEROSIS
  3. VITAMIN D [Concomitant]
     Indication: MULTIPLE SCLEROSIS

REACTIONS (9)
  - MALAISE [None]
  - MEMORY IMPAIRMENT [None]
  - STRESS [None]
  - COGNITIVE DISORDER [None]
  - AMNESIA [None]
  - CONFUSIONAL STATE [None]
  - HEMIPARESIS [None]
  - MUSCULAR WEAKNESS [None]
  - PALLOR [None]
